FAERS Safety Report 14171349 (Version 1)
Quarter: 2017Q4

REPORT INFORMATION
  Report Type: Spontaneous
  Country: GB (occurrence: GB)
  Receive Date: 20171108
  Receipt Date: 20171108
  Transmission Date: 20180321
  Serious: Yes (Life-Threatening, Hospitalization, Other)
  Sender: FDA-Public Use
  Company Number: GB-MYLANLABS-2017M1069617

PATIENT
  Age: 58 Year
  Sex: Female

DRUGS (8)
  1. SODIUM CHLORIDE. [Suspect]
     Active Substance: SODIUM CHLORIDE
     Indication: DEHYDRATION
     Dosage: 500 ML OF SODIUM CHLORIDE 0.9%
     Route: 042
  2. LITHIUM. [Suspect]
     Active Substance: LITHIUM
     Indication: BIPOLAR DISORDER
     Route: 065
  3. SODIUM CHLORIDE. [Suspect]
     Active Substance: SODIUM CHLORIDE
     Indication: VEHICLE SOLUTION USE
     Dosage: 3L OF 0.9% OVER 24 HOURS
     Route: 050
  4. CHLORPROMAZINE. [Concomitant]
     Active Substance: CHLORPROMAZINE
     Indication: URINARY TRACT INFECTION
     Route: 065
  5. CEFALEXIN [Concomitant]
     Active Substance: CEPHALEXIN
     Indication: URINARY TRACT INFECTION
     Route: 065
  6. GLUCOSE [Suspect]
     Active Substance: DEXTROSE
     Indication: HYPERNATRAEMIA
     Dosage: 5%
     Route: 042
  7. SODIUM CHLORIDE. [Suspect]
     Active Substance: SODIUM CHLORIDE
     Indication: HYPERCALCAEMIA
  8. ZOLEDRONIC ACID [Suspect]
     Active Substance: ZOLEDRONIC ACID
     Indication: HYPERCALCAEMIA
     Dosage: 4 MG IN 500 ML OF SODIUM CHLORIDE 0.9%
     Route: 042

REACTIONS (10)
  - Myopathy [Recovering/Resolving]
  - Hypocalcaemia [Unknown]
  - Hypernatraemia [Recovered/Resolved]
  - Hyperthyroidism [Recovered/Resolved]
  - Vitamin D deficiency [Unknown]
  - Toxicity to various agents [Recovered/Resolved]
  - Unmasking of previously unidentified disease [Unknown]
  - Nephrogenic diabetes insipidus [Unknown]
  - Cerebral atrophy [Recovering/Resolving]
  - Hyperparathyroidism [Recovered/Resolved]
